FAERS Safety Report 9247441 (Version 1)
Quarter: 2013Q2

REPORT INFORMATION
  Report Type: Spontaneous
  Country: US (occurrence: US)
  Receive Date: 20130423
  Receipt Date: 20130423
  Transmission Date: 20140414
  Serious: No
  Sender: FDA-Public Use
  Company Number: US-MYLANLABS-2012S1014716

PATIENT
  Age: 59 Year
  Sex: Female

DRUGS (5)
  1. LORAZEPAM TABLETS, USP [Suspect]
     Indication: ANXIETY
     Route: 048
  2. PERCOCET [Concomitant]
     Indication: NECK PAIN
  3. NEXIUM [Concomitant]
  4. CARAFATE [Concomitant]
  5. REGLAN [Concomitant]

REACTIONS (1)
  - Drug screen negative [Not Recovered/Not Resolved]
